FAERS Safety Report 6257061-7 (Version None)
Quarter: 2009Q3

REPORT INFORMATION
  Report Type: 
  Country: None (occurrence: None)
  Receive Date: 20090706
  Receipt Date: 20090625
  Transmission Date: 20100115
  Serious: Yes (Congenital Anomaly)
  Sender: FDA-Public Use
  Company Number: A0795117A

PATIENT
  Sex: Male
  Weight: 3.3 kg

DRUGS (8)
  1. LAMICTAL [Suspect]
     Indication: EPILEPSY
     Dosage: 300MG PER DAY
     Dates: start: 20080923
  2. TOPAMAX [Concomitant]
     Dosage: 800MG PER DAY
  3. TRILEPTAL [Concomitant]
     Dosage: 2700MG PER DAY
  4. KEPPRA [Concomitant]
     Dosage: 1500MG PER DAY
     Dates: end: 20080901
  5. VITAMIN TAB [Concomitant]
  6. FOLIC ACID [Concomitant]
     Dosage: 4MG PER DAY
  7. LORAZEPAM [Concomitant]
     Dosage: 1MG AS REQUIRED
  8. VITAMIN K [Concomitant]

REACTIONS (2)
  - DRUG EXPOSURE DURING PREGNANCY [None]
  - FALLOT'S TETRALOGY [None]
